FAERS Safety Report 9193893 (Version 1)
Quarter: 2013Q1

REPORT INFORMATION
  Report Type: Spontaneous
  Country: US (occurrence: None)
  Receive Date: 20130325
  Receipt Date: 20130325
  Transmission Date: 20140127
  Serious: Yes (Other)
  Sender: FDA-Public Use
  Company Number: A1016466A

PATIENT
  Age: 31 Year
  Sex: Female

DRUGS (1)
  1. SODIUM FLUORIDE [Suspect]
     Indication: DENTAL CLEANING
     Dates: start: 201303, end: 201303

REACTIONS (2)
  - Tongue pruritus [None]
  - Oropharyngeal blistering [None]
